FAERS Safety Report 10732171 (Version 1)
Quarter: 2015Q1

REPORT INFORMATION
  Report Type: Spontaneous
  Country: US (occurrence: None)
  Receive Date: 20150120
  Receipt Date: 20150120
  Transmission Date: 20150721
  Serious: Yes (Death)
  Sender: FDA-Public Use
  Company Number: 2015010028

PATIENT
  Age: 54 Year
  Sex: Male

DRUGS (6)
  1. ZOLPIDEM (ZOLPIDEM) [Suspect]
     Active Substance: ZOLPIDEM TARTRATE
  2. PHENYTOIN (PHENYTOIN) [Suspect]
     Active Substance: PHENYTOIN
  3. CLONAZEPAM (CLONAZEPAM) [Suspect]
     Active Substance: CLONAZEPAM
  4. HEROIN [Suspect]
     Active Substance: DIACETYLMORPHINE
  5. PROMETHAZINE [Suspect]
     Active Substance: PROMETHAZINE\PROMETHAZINE HYDROCHLORIDE
  6. CODEINE [Suspect]
     Active Substance: CODEINE

REACTIONS (2)
  - Drug abuse [None]
  - Poisoning [None]

NARRATIVE: CASE EVENT DATE: 2013
